FAERS Safety Report 9416183 (Version 2)
Quarter: 2013Q3

REPORT INFORMATION
  Report Type: Spontaneous
  Country: CA (occurrence: CA)
  Receive Date: 20130724
  Receipt Date: 20130820
  Transmission Date: 20140515
  Serious: Yes (Other)
  Sender: FDA-Public Use
  Company Number: CA-AMGEN-CANSP2013051454

PATIENT
  Age: 49 Year
  Sex: Female

DRUGS (4)
  1. ENBREL [Suspect]
     Indication: PSORIATIC ARTHROPATHY
     Dosage: 50 MG, QWK
     Route: 058
     Dates: start: 20100927, end: 20130707
  2. CIPROLEX [Concomitant]
     Dosage: UNK
  3. ADVIL                              /00109201/ [Concomitant]
     Indication: PAIN
     Dosage: 200 MG, BID
     Route: 048
  4. ADVIL                              /00109201/ [Concomitant]
     Indication: HEADACHE

REACTIONS (1)
  - Breast cancer [Not Recovered/Not Resolved]
